APPROVED DRUG PRODUCT: CARDIOLITE
Active Ingredient: TECHNETIUM TC-99M SESTAMIBI KIT
Strength: N/A
Dosage Form/Route: INJECTABLE;INJECTION
Application: N019785 | Product #001 | TE Code: AP
Applicant: LANTHEUS MEDICAL IMAGING INC
Approved: Dec 21, 1990 | RLD: Yes | RS: Yes | Type: RX